FAERS Safety Report 4859921-8 (Version None)
Quarter: 2005Q4

REPORT INFORMATION
  Report Type: 
  Country: None (occurrence: None)
  Receive Date: 20051219
  Receipt Date: 20050715
  Transmission Date: 20060501
  Serious: No
  Sender: FDA-Public Use
  Company Number: US-BRISTOL-MYERS SQUIBB COMPANY-13039623

PATIENT
  Age: 13 Year
  Sex: Female

DRUGS (4)
  1. DOVONEX [Suspect]
  2. NIZORAL [Concomitant]
     Dosage: SHAMPOO
     Route: 050
  3. SELENIUM SULFIDE [Concomitant]
     Route: 062
  4. AMOXICILLIN [Concomitant]

REACTIONS (2)
  - HAEMORRHAGE SUBCUTANEOUS [None]
  - SKIN EXFOLIATION [None]
